FAERS Safety Report 16005451 (Version 1)
Quarter: 2019Q1

REPORT INFORMATION
  Report Type: Spontaneous
  Country: US (occurrence: US)
  Receive Date: 20190226
  Receipt Date: 20190226
  Transmission Date: 20190418
  Serious: Yes (Hospitalization, Other)
  Sender: FDA-Public Use
  Company Number: US-BIOVITRUM-2019US0348

PATIENT
  Age: 14 Year
  Sex: Male
  Weight: 85 kg

DRUGS (1)
  1. ORFADIN [Suspect]
     Active Substance: NITISINONE
     Indication: TYROSINAEMIA
     Dosage: 1MG/KG

REACTIONS (5)
  - Pain [Recovered/Resolved]
  - Alpha 1 foetoprotein increased [Unknown]
  - Succinylacetone increased [Unknown]
  - Gastric ulcer haemorrhage [Recovered/Resolved]
  - Learning disability [Not Recovered/Not Resolved]

NARRATIVE: CASE EVENT DATE: 201811
